FAERS Safety Report 8649138 (Version 2)
Quarter: 2012Q4

REPORT INFORMATION
  Report Type: 
  Country: PL (occurrence: PL)
  Receive Date: 20120705
  Receipt Date: 20121001
  Transmission Date: 20130627
  Serious: Yes (Other)
  Sender: FDA-Public Use
  Company Number: PL-ROCHE-1079233

PATIENT
  Age: 42 None
  Sex: Female
  Weight: 50 kg

DRUGS (4)
  1. HERCEPTIN [Suspect]
     Indication: BREAST CANCER
     Route: 065
     Dates: start: 20071017, end: 20081008
  2. XELODA [Suspect]
     Indication: BREAST CANCER
     Route: 065
     Dates: start: 200901
  3. XELODA [Suspect]
     Dosage: dose reduction by 20%
     Route: 065
     Dates: end: 201204
  4. TYVERB [Concomitant]
     Indication: BREAST CANCER
     Route: 065
     Dates: start: 200901, end: 201204

REACTIONS (3)
  - Disease progression [Unknown]
  - Palmar-plantar erythrodysaesthesia syndrome [Recovered/Resolved]
  - Diarrhoea [Recovered/Resolved]
